FAERS Safety Report 8413351-0 (Version None)
Quarter: 2012Q2

REPORT INFORMATION
  Report Type: 
  Country: None (occurrence: None)
  Receive Date: 20120605
  Receipt Date: 20120525
  Transmission Date: 20120825
  Serious: Yes (Other)
  Sender: FDA-Public Use
  Company Number: CA-JNJFOC-20120519554

PATIENT
  Sex: Female
  Weight: 65.4 kg

DRUGS (8)
  1. VITAMIN D [Concomitant]
     Route: 065
  2. BIOTIN [Concomitant]
     Route: 065
  3. CALCIUM [Concomitant]
     Route: 065
  4. ASACOL [Concomitant]
     Route: 065
  5. REMICADE [Suspect]
     Indication: CROHN'S DISEASE
     Route: 042
     Dates: start: 20110715
  6. FOLIC ACID [Concomitant]
     Route: 065
  7. SALOFALK ENEMA [Concomitant]
     Route: 065
  8. IMURAN [Concomitant]
     Route: 065

REACTIONS (4)
  - PHOTOPHOBIA [None]
  - VOMITING [None]
  - HEADACHE [None]
  - HYPERACUSIS [None]
